FAERS Safety Report 25860466 (Version 1)
Quarter: 2025Q3

REPORT INFORMATION
  Report Type: Spontaneous
  Country: US (occurrence: US)
  Receive Date: 20250929
  Receipt Date: 20250929
  Transmission Date: 20251020
  Serious: No
  Sender: PFIZER
  Company Number: US-PFIZER INC-202500190618

PATIENT
  Age: 78 Year
  Sex: Female
  Weight: 54.422 kg

DRUGS (1)
  1. ZYVOX [Suspect]
     Active Substance: LINEZOLID
     Indication: Bacterial infection
     Dosage: UNK, 4X/DAY
     Dates: start: 20250810, end: 20250813

REACTIONS (9)
  - Drug hypersensitivity [Unknown]
  - Diarrhoea [Unknown]
  - Nausea [Not Recovered/Not Resolved]
  - Confusional state [Unknown]
  - Dizziness [Not Recovered/Not Resolved]
  - Activities of daily living decreased [Unknown]
  - Weight decreased [Unknown]
  - Vertigo [Unknown]
  - Off label use [Unknown]

NARRATIVE: CASE EVENT DATE: 20250810
